FAERS Safety Report 7947898-8 (Version None)
Quarter: 2011Q4

REPORT INFORMATION
  Report Type: 
  Country: None (occurrence: None)
  Receive Date: 20111121
  Receipt Date: 20111108
  Transmission Date: 20120403
  Serious: Yes (Other)
  Sender: FDA-Public Use
  Company Number: 2011SP052476

PATIENT
  Age: 42 Year
  Sex: Male

DRUGS (3)
  1. DESLORATADINE [Suspect]
     Indication: NASOPHARYNGITIS
     Dosage: 5 MG;QD;PO
     Route: 048
     Dates: start: 20111103
  2. DESLORATADINE [Suspect]
     Indication: COUGH
     Dosage: 5 MG;QD;PO
     Route: 048
     Dates: start: 20111103
  3. AUGMENTIN '125' [Concomitant]

REACTIONS (1)
  - MELAENA [None]
